FAERS Safety Report 22115649 (Version 1)
Quarter: 2023Q1

REPORT INFORMATION
  Report Type: Spontaneous
  Country: US (occurrence: US)
  Receive Date: 20230320
  Receipt Date: 20230320
  Transmission Date: 20230417
  Serious: No
  Sender: FDA-Public Use
  Company Number: US-PFIZER INC-PV202200029160

PATIENT
  Age: 64 Year
  Sex: Male

DRUGS (1)
  1. CIBINQO [Suspect]
     Active Substance: ABROCITINIB
     Dosage: 1 TABLET DAILY
     Route: 048

REACTIONS (2)
  - Cardiac disorder [Unknown]
  - Product dispensing error [Unknown]
